FAERS Safety Report 7497564-0 (Version None)
Quarter: 2011Q2

REPORT INFORMATION
  Report Type: 
  Country: None (occurrence: None)
  Receive Date: 20110523
  Receipt Date: 20110516
  Transmission Date: 20111010
  Serious: Yes (Death, Hospitalization)
  Sender: FDA-Public Use
  Company Number: US-CELGENEUS-163-20785-11030614

PATIENT
  Sex: Male

DRUGS (4)
  1. THALOMID [Suspect]
     Dosage: 100 MILLIGRAM
     Route: 048
     Dates: start: 20090401
  2. COUMADIN [Concomitant]
     Dosage: 1 MILLIGRAM
     Route: 065
     Dates: end: 20110214
  3. THALOMID [Suspect]
     Indication: MULTIPLE MYELOMA
     Dosage: 100 MILLIGRAM
     Route: 048
     Dates: start: 20090101, end: 20090101
  4. THALOMID [Suspect]
     Dosage: 150 MILLIGRAM
     Route: 048
     Dates: start: 20090201, end: 20090101

REACTIONS (2)
  - EPISTAXIS [None]
  - PNEUMONIA [None]
